FAERS Safety Report 4425458-3 (Version None)
Quarter: 2004Q3

REPORT INFORMATION
  Report Type: 
  Country: None (occurrence: None)
  Receive Date: 20040813
  Receipt Date: 20040804
  Transmission Date: 20050211
  Serious: Yes (Hospitalization)
  Sender: FDA-Public Use
  Company Number: US-ROCHE-376768

PATIENT
  Age: 41 Year
  Sex: Male

DRUGS (2)
  1. ACCUTANE [Suspect]
     Indication: DRUG USE FOR UNKNOWN INDICATION
     Route: 065
     Dates: start: 19990615, end: 20020915
  2. UNKNOWN DRUG [Concomitant]
     Dates: start: 19990615, end: 20010615

REACTIONS (4)
  - ABDOMINAL PAIN [None]
  - INFLAMMATORY BOWEL DISEASE [None]
  - PANCREATIC DISORDER [None]
  - SWELLING [None]
